FAERS Safety Report 5345768-5 (Version None)
Quarter: 2007Q2

REPORT INFORMATION
  Report Type: 
  Country: None (occurrence: None)
  Receive Date: 20070601
  Receipt Date: 20070518
  Transmission Date: 20071010
  Serious: Yes (Disabling)
  Sender: FDA-Public Use
  Company Number: US020183

PATIENT
  Age: 41 Year
  Sex: Female
  Weight: 69 kg

DRUGS (2)
  1. VIGIL /01265601/ [Suspect]
     Indication: NARCOLEPSY
     Dosage: UP TO 300MG ORAL
     Route: 048
     Dates: start: 20070201
  2. XYREM [Suspect]
     Indication: NARCOLEPSY
     Dosage: 9 MG
     Dates: start: 20070101

REACTIONS (2)
  - BRAIN DAMAGE [None]
  - CEREBRAL INFARCTION [None]
